FAERS Safety Report 20806912 (Version 1)
Quarter: 2022Q2

REPORT INFORMATION
  Report Type: Spontaneous
  Country: FR (occurrence: FR)
  Receive Date: 20220510
  Receipt Date: 20220510
  Transmission Date: 20220721
  Serious: Yes (Other)
  Sender: FDA-Public Use
  Company Number: FR-AFSSAPS-RN20221019

PATIENT
  Age: 71 Year
  Sex: Female

DRUGS (2)
  1. GEMCITABINE [Suspect]
     Active Substance: GEMCITABINE
     Indication: Cutaneous T-cell lymphoma
     Dosage: 184 MILLIGRAM (J1, J2)
     Route: 042
     Dates: start: 20220330, end: 20220405
  2. ONDANSETRON [Suspect]
     Active Substance: ONDANSETRON
     Indication: Anaesthetic premedication
     Dosage: 8 MILLIGRAM (J1, J2)
     Route: 042
     Dates: start: 20220330, end: 20220405

REACTIONS (1)
  - Hepatic cytolysis [Not Recovered/Not Resolved]

NARRATIVE: CASE EVENT DATE: 20220411
